FAERS Safety Report 14620735 (Version 4)
Quarter: 2018Q2

REPORT INFORMATION
  Report Type: Report from Study
  Country: US (occurrence: US)
  Receive Date: 20180309
  Receipt Date: 20180410
  Transmission Date: 20180711
  Serious: Yes (Hospitalization)
  Sender: FDA-Public Use
  Company Number: US-ACTELION-A-US2018-168646

PATIENT
  Age: 46 Year
  Sex: Female
  Weight: 80.27 kg

DRUGS (2)
  1. OPSUMIT [Suspect]
     Active Substance: MACITENTAN
     Indication: PULMONARY ARTERIAL HYPERTENSION
     Dosage: 10 MG, QD
     Route: 048
     Dates: start: 20180220, end: 20180308
  2. TYVASO [Concomitant]
     Active Substance: TREPROSTINIL

REACTIONS (13)
  - Dyspnoea [Unknown]
  - Headache [Unknown]
  - Swelling face [Unknown]
  - Swelling [Unknown]
  - Blood count abnormal [Unknown]
  - Right ventricular failure [Recovered/Resolved]
  - Pulmonary hypertension [Unknown]
  - Syncope [Unknown]
  - Fluid overload [Recovered/Resolved]
  - Nausea [Unknown]
  - Dizziness [Unknown]
  - Peripheral swelling [Unknown]
  - Drug hypersensitivity [Unknown]

NARRATIVE: CASE EVENT DATE: 20180225
